FAERS Safety Report 6809527-6 (Version None)
Quarter: 2010Q2

REPORT INFORMATION
  Report Type: 
  Country: None (occurrence: None)
  Receive Date: 20100630
  Receipt Date: 20100615
  Transmission Date: 20101027
  Serious: Yes (Other)
  Sender: FDA-Public Use
  Company Number: PHHY2010US39244

PATIENT
  Sex: Female

DRUGS (6)
  1. TEKTURNA [Suspect]
     Dosage: 300 MG
  2. HYDRALAZINE HCL [Suspect]
  3. METOPROLOL [Suspect]
  4. SPIRONOLACTONE [Suspect]
  5. AVAPRO [Suspect]
  6. INSULIN [Concomitant]

REACTIONS (5)
  - BLOOD PRESSURE DIASTOLIC DECREASED [None]
  - BLOOD PRESSURE SYSTOLIC INCREASED [None]
  - FATIGUE [None]
  - FEELING ABNORMAL [None]
  - HYPERTENSION [None]
